FAERS Safety Report 7098035-6 (Version None)
Quarter: 2010Q4

REPORT INFORMATION
  Report Type: 
  Country: None (occurrence: None)
  Receive Date: 20101103
  Receipt Date: 20101021
  Transmission Date: 20110411
  Serious: Yes (Other)
  Sender: FDA-Public Use
  Company Number: 2010AP001996

PATIENT
  Age: 37 Year
  Sex: Female

DRUGS (5)
  1. CITALOPRAM HYDROBROMIDE [Suspect]
     Indication: DEPRESSION
     Dosage: 20 MG;PO, 10 MG;PO
     Route: 048
     Dates: start: 20100618, end: 20100902
  2. LEVOTHYROXINE SODIUM [Suspect]
     Indication: HYPOTHYROIDISM
     Dosage: 175 UG, PO, 125 UG
     Route: 048
     Dates: end: 20100902
  3. NICOTINAMIDE [Concomitant]
  4. RIBOFLAVIN (RIBOFLAVIN) [Concomitant]
  5. THIAMINE HCL [Concomitant]

REACTIONS (3)
  - ANXIETY [None]
  - DRUG INTERACTION [None]
  - THYROXINE FREE INCREASED [None]
